FAERS Safety Report 8355331-X (Version None)
Quarter: 2012Q2

REPORT INFORMATION
  Report Type: 
  Country: None (occurrence: None)
  Receive Date: 20120511
  Receipt Date: 20120504
  Transmission Date: 20120825
  Serious: Yes (Hospitalization)
  Sender: FDA-Public Use
  Company Number: US-ABBOTT-12P-163-0932455-00

PATIENT
  Sex: Male
  Weight: 12 kg

DRUGS (9)
  1. TOPAMAX [Concomitant]
     Indication: CONVULSION
     Dosage: 45 MG QAM
     Route: 048
     Dates: start: 20110620
  2. DIAZEPAM [Concomitant]
     Indication: CONVULSION
     Route: 048
     Dates: start: 20120202
  3. DEPAKOTE [Suspect]
     Indication: CONVULSION
     Route: 048
     Dates: start: 20120209, end: 20120416
  4. DEPAKOTE [Suspect]
     Route: 048
  5. KEPPRA [Concomitant]
     Indication: PRODUCT USED FOR UNKNOWN INDICATION
     Route: 048
     Dates: start: 20120212
  6. RANITIDINE [Concomitant]
     Indication: PRODUCT USED FOR UNKNOWN INDICATION
     Route: 048
     Dates: start: 20090101
  7. POLYVISOL [Concomitant]
     Indication: PRODUCT USED FOR UNKNOWN INDICATION
     Route: 048
     Dates: start: 20100101
  8. TOPAMAX [Concomitant]
     Dosage: 60 MG QPM
     Route: 048
     Dates: start: 20110620
  9. MELATONIN [Concomitant]
     Indication: PRODUCT USED FOR UNKNOWN INDICATION
     Route: 048
     Dates: start: 20090101

REACTIONS (2)
  - LETHARGY [None]
  - DEHYDRATION [None]
